FAERS Safety Report 5315590-4 (Version None)
Quarter: 2007Q2

REPORT INFORMATION
  Report Type: 
  Country: None (occurrence: None)
  Receive Date: 20070427
  Receipt Date: 20070419
  Transmission Date: 20071010
  Serious: Yes (Other)
  Sender: FDA-Public Use
  Company Number: 155511USA

PATIENT
  Age: 56 Year
  Sex: Male

DRUGS (5)
  1. MIRTAZAPINE [Suspect]
     Indication: SOMNOLENCE
     Dosage: (30 MG), ORAL
     Route: 048
     Dates: start: 20070311, end: 20070324
  2. CARBAMAZEPINE [Concomitant]
  3. GABAPENTIN [Concomitant]
  4. METOPROLOL SUCCINATE [Concomitant]
  5. CALCITRIOL [Concomitant]

REACTIONS (2)
  - BLOOD GLUCOSE INCREASED [None]
  - DIABETES MELLITUS NON-INSULIN-DEPENDENT [None]
